FAERS Safety Report 9788884 (Version 1)
Quarter: 2013Q4

REPORT INFORMATION
  Report Type: Spontaneous
  Country: GB (occurrence: GB)
  Receive Date: 20131230
  Receipt Date: 20131230
  Transmission Date: 20140711
  Serious: Yes (Life-Threatening, Other)
  Sender: FDA-Public Use
  Company Number: GB-ABBVIE-13P-167-1183091-00

PATIENT
  Age: 44 Year
  Sex: Male

DRUGS (2)
  1. HUMIRA [Suspect]
     Indication: CROHN^S DISEASE
     Route: 058
     Dates: start: 20100914, end: 20131003
  2. HUMIRA [Suspect]
     Indication: CROHN^S DISEASE

REACTIONS (4)
  - Colon cancer metastatic [Unknown]
  - Adenocarcinoma of colon [Unknown]
  - Metastases to liver [Unknown]
  - Intestinal perforation [Unknown]
